FAERS Safety Report 17497004 (Version 5)
Quarter: 2024Q4

REPORT INFORMATION
  Report Type: Spontaneous
  Country: FI (occurrence: FI)
  Receive Date: 20200304
  Receipt Date: 20241203
  Transmission Date: 20250115
  Serious: Yes (Hospitalization, Other)
  Sender: MYLAN
  Company Number: FI-ORION CORPORATION ORION PHARMA-DEPR2020-0001

PATIENT
  Age: 58 Year
  Sex: Male

DRUGS (8)
  1. OXALIPLATIN [Interacting]
     Active Substance: OXALIPLATIN
     Indication: Rectal cancer metastatic
     Dosage: UNK
     Route: 065
  2. OXALIPLATIN [Interacting]
     Active Substance: OXALIPLATIN
     Indication: Adjuvant therapy
  3. OXALIPLATIN [Interacting]
     Active Substance: OXALIPLATIN
     Indication: Metastases to lymph nodes
  4. XELODA [Interacting]
     Active Substance: CAPECITABINE
     Indication: Rectal cancer metastatic
     Dosage: UNK
     Route: 065
  5. XELODA [Interacting]
     Active Substance: CAPECITABINE
     Indication: Metastases to lymph nodes
  6. XELODA [Interacting]
     Active Substance: CAPECITABINE
     Indication: Adjuvant therapy
  7. VALPROIC ACID [Interacting]
     Active Substance: VALPROIC ACID
     Indication: Bipolar disorder
     Dosage: 1800 MILLIGRAM, QD
     Route: 065
  8. QUETIAPINE FUMARATE [Suspect]
     Active Substance: QUETIAPINE FUMARATE
     Indication: Bipolar disorder
     Dosage: 400 MILLIGRAM, QD
     Route: 065

REACTIONS (10)
  - Toxicity to various agents [Recovered/Resolved]
  - Blood albumin decreased [Unknown]
  - Balance disorder [Recovered/Resolved]
  - Tremor [Recovered/Resolved]
  - Diplopia [Recovered/Resolved]
  - Speech disorder [Recovered/Resolved]
  - Fatigue [Recovered/Resolved]
  - Drug abuse [Unknown]
  - Drug interaction [Unknown]
  - Overdose [Unknown]
